FAERS Safety Report 8259150-4 (Version None)
Quarter: 2012Q2

REPORT INFORMATION
  Report Type: 
  Country: None (occurrence: None)
  Receive Date: 20120404
  Receipt Date: 20120326
  Transmission Date: 20120825
  Serious: Yes (Other)
  Sender: FDA-Public Use
  Company Number: CHPA2012US004898

PATIENT
  Age: 73 Year
  Sex: Female

DRUGS (10)
  1. DRUG THERAPY NOS [Concomitant]
     Route: 048
  2. VITAMIN B COMPLEX CAP [Concomitant]
     Dosage: UNK
     Route: 048
  3. ZINC SULFATE [Concomitant]
     Route: 048
  4. THYROID THERAPY [Concomitant]
     Route: 048
  5. ASCORBIC ACID [Concomitant]
     Dosage: UNK
     Route: 048
  6. PREVACID 24 HR [Suspect]
     Indication: TOOTHACHE
     Dosage: 30 MG, QD
     Route: 048
     Dates: start: 20020101
  7. LISINOPRIL [Concomitant]
     Dosage: UNK
     Route: 048
  8. PLAVIX [Concomitant]
     Route: 048
  9. PREVACID 24 HR [Suspect]
     Dosage: 15 MG, QD
     Route: 048
  10. VITAMIN D [Concomitant]
     Dosage: 50,000 ONCE A WEEK
     Route: 048

REACTIONS (6)
  - OVERDOSE [None]
  - DISEASE RECURRENCE [None]
  - OFF LABEL USE [None]
  - INCORRECT DRUG ADMINISTRATION DURATION [None]
  - TREATMENT NONCOMPLIANCE [None]
  - WRIST FRACTURE [None]
